FAERS Safety Report 4809379-X (Version None)
Quarter: 2005Q4

REPORT INFORMATION
  Report Type: 
  Country: None (occurrence: None)
  Receive Date: 20051021
  Receipt Date: 20051013
  Transmission Date: 20060501
  Serious: Yes (Other)
  Sender: FDA-Public Use
  Company Number: 2005142505

PATIENT
  Age: 42 Year
  Sex: Male
  Weight: 70.3075 kg

DRUGS (1)
  1. ZOLOFT [Suspect]
     Indication: ANXIETY
     Dosage: 50 MG (50 MG, 1 IN 1 D),
     Dates: start: 20020101, end: 20051008

REACTIONS (8)
  - BENIGN PROSTATIC HYPERPLASIA [None]
  - DYSURIA [None]
  - ENTEROCOCCAL INFECTION [None]
  - GASTROINTESTINAL PAIN [None]
  - PAINFUL DEFAECATION [None]
  - POLLAKIURIA [None]
  - PROSTATE INFECTION [None]
  - URINE FLOW DECREASED [None]
